FAERS Safety Report 5924764-0 (Version None)
Quarter: 2008Q4

REPORT INFORMATION
  Report Type: 
  Country: None (occurrence: None)
  Receive Date: 20081017
  Receipt Date: 20081009
  Transmission Date: 20090506
  Serious: Yes (Hospitalization)
  Sender: FDA-Public Use
  Company Number: WAES0810USA01786

PATIENT
  Age: 56 Year
  Sex: Male
  Weight: 96.6162 kg

DRUGS (3)
  1. DEXAMETHASONE [Suspect]
  2. TEMODAR [Suspect]
     Indication: GLIOBLASTOMA MULTIFORME
     Dosage: 75 MG/M[2]/PO, 50 MG/M[2]/PO
     Route: 048
     Dates: start: 20080918, end: 20080928
  3. TEMODAR [Suspect]
     Indication: GLIOBLASTOMA MULTIFORME
     Dosage: 75 MG/M[2]/PO, 50 MG/M[2]/PO
     Route: 048
     Dates: start: 20080430

REACTIONS (7)
  - ABASIA [None]
  - ASTHENIA [None]
  - DIARRHOEA [None]
  - FAILURE TO THRIVE [None]
  - FALL [None]
  - FATIGUE [None]
  - PERIPHERAL MOTOR NEUROPATHY [None]
